FAERS Safety Report 10297526 (Version 1)
Quarter: 2014Q3

REPORT INFORMATION
  Report Type: Spontaneous
  Country: DE (occurrence: DE)
  Receive Date: 20140711
  Receipt Date: 20140711
  Transmission Date: 20150326
  Serious: Yes (Congenital Anomaly, Other)
  Sender: FDA-Public Use
  Company Number: DE-TEVA-493211GER

PATIENT
  Age: 1 Day
  Sex: Female

DRUGS (3)
  1. LEVETIRACETAM. [Suspect]
     Active Substance: LEVETIRACETAM
     Route: 064
  2. RHOPHYLAC [Concomitant]
     Active Substance: HUMAN RHO(D) IMMUNE GLOBULIN
     Route: 064
  3. FEMIBION SCHWANGERSCHAFT 1 [Concomitant]
     Route: 064

REACTIONS (7)
  - Blood creatine phosphokinase MB increased [Not Recovered/Not Resolved]
  - Apnoea neonatal [Recovered/Resolved]
  - Patent ductus arteriosus [Recovered/Resolved]
  - Laryngomalacia [Recovered/Resolved]
  - Bradycardia neonatal [Recovered/Resolved]
  - Pericardial effusion [Not Recovered/Not Resolved]
  - Premature baby [Recovering/Resolving]

NARRATIVE: CASE EVENT DATE: 20131228
